FAERS Safety Report 8333731-1 (Version None)
Quarter: 2012Q2

REPORT INFORMATION
  Report Type: 
  Country: None (occurrence: None)
  Receive Date: 20120503
  Receipt Date: 20120503
  Transmission Date: 20120825
  Serious: Yes (Other)
  Sender: FDA-Public Use
  Company Number: None

PATIENT
  Sex: Female
  Weight: 51.1 kg

DRUGS (2)
  1. DEXTROSE 5% [Suspect]
  2. OXALIPLATIN [Suspect]
     Indication: PANCREATIC CARCINOMA
     Dosage: |DOSAGETEXT: 125 MG/500 ML D5W||ROUTE: INTRAVENOUS DRIP|
     Route: 041
     Dates: start: 20120430, end: 20120430

REACTIONS (2)
  - SPEECH DISORDER [None]
  - DYSARTHRIA [None]
